FAERS Safety Report 8031520-9 (Version None)
Quarter: 2012Q1

REPORT INFORMATION
  Report Type: 
  Country: None (occurrence: None)
  Receive Date: 20120109
  Receipt Date: 20120103
  Transmission Date: 20120608
  Serious: Yes (Other)
  Sender: FDA-Public Use
  Company Number: US-ALLERGAN-1200099US

PATIENT
  Age: 66 Year
  Sex: Female

DRUGS (1)
  1. ZYMAXID [Suspect]
     Indication: PREOPERATIVE CARE
     Dosage: UNK
     Route: 047

REACTIONS (2)
  - ENDOPHTHALMITIS [None]
  - TOXIC ANTERIOR SEGMENT SYNDROME [None]
